FAERS Safety Report 9876847 (Version 1)
Quarter: 2014Q1

REPORT INFORMATION
  Report Type: Spontaneous
  Country: GB (occurrence: GB)
  Receive Date: 20140206
  Receipt Date: 20140206
  Transmission Date: 20141002
  Serious: Yes (Hospitalization)
  Sender: FDA-Public Use
  Company Number: GB-ROCHE-1343535

PATIENT
  Sex: 0

DRUGS (3)
  1. PERJETA [Suspect]
     Indication: PRODUCT USED FOR UNKNOWN INDICATION
     Route: 065
  2. HERCEPTIN [Concomitant]
     Route: 065
  3. DOCETAXEL [Concomitant]
     Route: 065

REACTIONS (2)
  - Gastric disorder [Unknown]
  - Neutropenia [Unknown]
